FAERS Safety Report 10349216 (Version 2)
Quarter: 2014Q3

REPORT INFORMATION
  Report Type: Report from Study
  Country: DE (occurrence: DE)
  Receive Date: 20140730
  Receipt Date: 20140924
  Transmission Date: 20150326
  Serious: Yes (Life-Threatening, Other)
  Sender: FDA-Public Use
  Company Number: DE-UCBSA-2014007067

PATIENT
  Age: 83 Year
  Sex: Female

DRUGS (10)
  1. LACOSAMIDE [Suspect]
     Active Substance: LACOSAMIDE
     Indication: STATUS EPILEPTICUS
  2. QUETIAPINE [Concomitant]
     Active Substance: QUETIAPINE
     Dosage: 125 MG, UNK
  3. METAMIZOLE [Concomitant]
     Active Substance: METAMIZOLE
     Dosage: 1500 MG, UNK
  4. VALSARTAN. [Concomitant]
     Active Substance: VALSARTAN
     Dosage: 80 MG, UNK
  5. LEVODOPA BENSERAZIDE [Concomitant]
     Active Substance: BENSERAZIDE\LEVODOPA
     Dosage: LEVODOPA 100 MG PLUS BENSERAZIDE 25 MG
  6. CIPROFLOXACIN. [Concomitant]
     Active Substance: CIPROFLOXACIN
     Dosage: 500 MG, UNK
  7. ENTACAPONE. [Concomitant]
     Active Substance: ENTACAPONE
     Dosage: 875 MG, UNK
  8. LACOSAMIDE [Suspect]
     Active Substance: LACOSAMIDE
     Indication: CONVULSION
     Dosage: 200 MG, UNK
     Route: 042
     Dates: start: 20130215
  9. LEVODOPA-CARBIDOPA [Concomitant]
     Active Substance: CARBIDOPA\LEVODOPA
     Dosage: 875 MG, UNK
  10. LOPERAMIDE [Concomitant]
     Active Substance: LOPERAMIDE
     Dosage: 4 MG, UNK

REACTIONS (4)
  - Atrioventricular block complete [Recovered/Resolved]
  - Bradycardia [Recovered/Resolved]
  - Atrioventricular block second degree [Recovered/Resolved]
  - Cardiac arrest [Recovered/Resolved]

NARRATIVE: CASE EVENT DATE: 20130215
